FAERS Safety Report 7981474-6 (Version None)
Quarter: 2011Q4

REPORT INFORMATION
  Report Type: 
  Country: None (occurrence: None)
  Receive Date: 20111215
  Receipt Date: 20111208
  Transmission Date: 20120403
  Serious: Yes (Other)
  Sender: FDA-Public Use
  Company Number: FR-PFIZER INC-2011299699

PATIENT
  Age: 60 Year
  Sex: Female

DRUGS (3)
  1. VFEND [Suspect]
     Indication: ASPERGILLOSIS
     Dosage: 200 MG, 2X/DAY
     Route: 042
     Dates: start: 20111118, end: 20111121
  2. PROGRAF [Concomitant]
     Indication: RENAL TRANSPLANT
     Dosage: UNK
  3. PREDNISOLONE [Concomitant]
     Indication: RENAL TRANSPLANT
     Dosage: 20 MG/DAY

REACTIONS (1)
  - PANCREATITIS ACUTE [None]
